FAERS Safety Report 5794501-1 (Version None)
Quarter: 2008Q2

REPORT INFORMATION
  Report Type: 
  Country: None (occurrence: None)
  Receive Date: 20080626
  Receipt Date: 20080613
  Transmission Date: 20081010
  Serious: Yes (Death)
  Sender: FDA-Public Use
  Company Number: 220005M08CAN

PATIENT
  Age: 12 Year
  Sex: Female
  Weight: 58.3 kg

DRUGS (4)
  1. SAIZEN [(SOMATROPPIN (RDNA ORIGIN) FOR INJECTION)] (SOMATROPIN) [Suspect]
     Dosage: 1.8 MG, 6 IN1 WEEKS, SUBCUTANEOUS
     Route: 058
     Dates: end: 20080422
  2. LEVOTHYROXINE SODIUM [Concomitant]
  3. DESMOPRESSIN ACETATE [Concomitant]
  4. PREDNISOLONE SODIUM PHOSPHATE [Concomitant]

REACTIONS (4)
  - MYALGIA [None]
  - PNEUMONIA [None]
  - SEPSIS [None]
  - SUDDEN DEATH [None]
